FAERS Safety Report 15000879 (Version 4)
Quarter: 2018Q3

REPORT INFORMATION
  Report Type: Spontaneous
  Country: FR (occurrence: FR)
  Receive Date: 20180612
  Receipt Date: 20180724
  Transmission Date: 20181010
  Serious: Yes (Hospitalization, Other)
  Sender: FDA-Public Use
  Company Number: FR-MYLANLABS-2018M1040524

PATIENT
  Age: 14 Year
  Sex: Female
  Weight: 39 kg

DRUGS (25)
  1. VORICONAZOLE. [Suspect]
     Active Substance: VORICONAZOLE
     Dosage: UNK
  2. VINCRISTINE [Interacting]
     Active Substance: VINCRISTINE
     Dosage: 2 UNK, UNK
     Route: 042
  3. AMITRIPTYLINE                      /00002202/ [Concomitant]
     Active Substance: AMITRIPTYLINE
     Indication: PRODUCT USED FOR UNKNOWN INDICATION
     Dosage: 12 MG, DAILY
  4. VORICONAZOLE. [Suspect]
     Active Substance: VORICONAZOLE
     Dosage: 300 MG,12 HOUR DOSE: SO AS TO KEEP THE TROUGH CONCENTRATION BETWEEN 1.5?5.5MG/L
     Route: 041
  5. METHOTREXATE. [Suspect]
     Active Substance: METHOTREXATE
     Indication: ACUTE LYMPHOCYTIC LEUKAEMIA
     Dosage: 5 5 G/M2 OVER 24 HOURS
     Route: 041
  6. VINCRISTINE SULFATE. [Interacting]
     Active Substance: VINCRISTINE SULFATE
     Indication: PRODUCT USED FOR UNKNOWN INDICATION
     Dosage: 1.5 MG, UNK
  7. PARACETAMOL [Concomitant]
     Active Substance: ACETAMINOPHEN
     Indication: PRODUCT USED FOR UNKNOWN INDICATION
     Dosage: FROM THE DAY 154 TO DAY 164
  8. CASPOFUNGIN [Concomitant]
     Active Substance: CASPOFUNGIN
     Indication: PRODUCT USED FOR UNKNOWN INDICATION
     Dosage: LAST DOSE THE DAY 164
  9. METHOTREXATE. [Suspect]
     Active Substance: METHOTREXATE
     Dosage: 5000 MG/M2, UNK
     Route: 042
  10. VINCRISTINE [Interacting]
     Active Substance: VINCRISTINE
     Indication: ACUTE LYMPHOCYTIC LEUKAEMIA
     Dosage: FRALLE 2000?BT PROTOCOL
     Route: 042
  11. GABAPENTIN. [Concomitant]
     Active Substance: GABAPENTIN
     Indication: PRODUCT USED FOR UNKNOWN INDICATION
     Dosage: FROM THE DAY 154 TO DAY 164
  12. VINCRISTINE [Interacting]
     Active Substance: VINCRISTINE
     Dosage: 2 MG, ACTION TAKEN: DOSE REDUCED AND THEN THERAPYCONTINUED. ROUTE: INFUSION
     Route: 050
  13. PHLOROGLUCINOL [Concomitant]
     Active Substance: PHLOROGLUCINOL
     Indication: PRODUCT USED FOR UNKNOWN INDICATION
     Dosage: FROM THE DAY 154 TO DAY 164
  14. AMPHOTERICIN B. [Concomitant]
     Active Substance: AMPHOTERICIN B
     Indication: PRODUCT USED FOR UNKNOWN INDICATION
     Dosage: STARTED THE DAY 159
  15. GRANULOCYTE COLONY STIMULATING FACTOR [Concomitant]
     Active Substance: GRANULOCYTE COLONY-STIMULATING FACTOR NOS
     Indication: PRODUCT USED FOR UNKNOWN INDICATION
     Dosage: FROM THE DAY 154 TO DAY 164
  16. IMIPENEM [Concomitant]
     Active Substance: IMIPENEM
     Indication: PRODUCT USED FOR UNKNOWN INDICATION
     Dosage: STARTED THE DAY 155
  17. FUROSEMIDE. [Concomitant]
     Active Substance: FUROSEMIDE
     Indication: PRODUCT USED FOR UNKNOWN INDICATION
     Dosage: STARTED THE DAY 159
  18. METHOTREXATE. [Suspect]
     Active Substance: METHOTREXATE
     Dosage: 5 G/M2, OVER 24 HOURS  UNK
     Route: 042
  19. VINCRISTINE [Interacting]
     Active Substance: VINCRISTINE
     Dosage: 1.5 UNK, UNK
     Route: 042
  20. VORICONAZOLE. [Suspect]
     Active Substance: VORICONAZOLE
     Indication: BRONCHOPULMONARY ASPERGILLOSIS
     Dosage: 300 MG/12 HOURS
     Route: 042
  21. VANCOMYCIN [Concomitant]
     Active Substance: VANCOMYCIN
     Indication: PRODUCT USED FOR UNKNOWN INDICATION
     Dosage: STARTED THE DAY 155
  22. TRIMETHOPRIM. [Concomitant]
     Active Substance: TRIMETHOPRIM
     Indication: PRODUCT USED FOR UNKNOWN INDICATION
     Dosage: STARTED THE DAY 159
  23. AMIKACIN. [Concomitant]
     Active Substance: AMIKACIN
     Indication: PRODUCT USED FOR UNKNOWN INDICATION
     Dosage: STARTED THE DAY 155,LAST DOSE THE DAY 164
  24. VORICONAZOLE. [Suspect]
     Active Substance: VORICONAZOLE
     Dosage: 350 MG, Q12H
     Route: 048
  25. SULFAMETHOXAZOLE [Concomitant]
     Active Substance: SULFAMETHOXAZOLE
     Indication: PRODUCT USED FOR UNKNOWN INDICATION
     Dosage: STARTED THE DAY 159

REACTIONS (21)
  - Hallucination, visual [Unknown]
  - Hepatosplenic candidiasis [Unknown]
  - Disorientation [Unknown]
  - Neuralgia [Recovered/Resolved]
  - Confusional state [Unknown]
  - Respiratory distress [Recovered/Resolved]
  - Drug level below therapeutic [Unknown]
  - Nervous system disorder [Recovered/Resolved]
  - Hypoaesthesia [Unknown]
  - Arthralgia [Unknown]
  - Musculoskeletal pain [Unknown]
  - Drug level increased [Recovered/Resolved]
  - Disease progression [Recovering/Resolving]
  - Condition aggravated [Unknown]
  - Treatment failure [Unknown]
  - Neurotoxicity [Recovered/Resolved]
  - Encephalopathy [Recovered/Resolved]
  - Inflammation [Recovered/Resolved]
  - Drug interaction [Recovered/Resolved]
  - Hallucination, auditory [Unknown]
  - Bronchopulmonary aspergillosis [Unknown]
